FAERS Safety Report 7417572-5 (Version None)
Quarter: 2011Q2

REPORT INFORMATION
  Report Type: 
  Country: None (occurrence: None)
  Receive Date: 20110415
  Receipt Date: 20110406
  Transmission Date: 20111010
  Serious: Yes (Hospitalization, Other)
  Sender: FDA-Public Use
  Company Number: CA-ASTRAZENECA-2010SE25045

PATIENT
  Age: 27754 Day
  Sex: Male
  Weight: 88 kg

DRUGS (10)
  1. CRESTOR [Concomitant]
     Indication: DYSLIPIDAEMIA
     Route: 048
     Dates: start: 20030101
  2. CASODEX [Suspect]
     Indication: PROSTATE CANCER
     Route: 048
     Dates: start: 20091101, end: 20100528
  3. RADIOTHERAPY [Suspect]
     Indication: PROSTATE CANCER
     Dosage: TOTAL DOSE OF 76 GY
     Route: 065
     Dates: start: 20100321, end: 20100520
  4. ZOLADEX [Suspect]
     Indication: PROSTATE CANCER
     Dosage: EVERY THREE MONTHS
     Route: 058
     Dates: start: 20091214
  5. RANITIDINE [Concomitant]
     Indication: GASTROOESOPHAGEAL REFLUX DISEASE
     Route: 048
     Dates: start: 20030101
  6. HYDROXYUREA [Concomitant]
     Route: 048
     Dates: start: 20040101
  7. FLOMAX [Concomitant]
     Indication: URINARY TRACT OBSTRUCTION
     Route: 048
     Dates: start: 20090101
  8. TIAZAC [Concomitant]
     Indication: HYPERTENSION
     Route: 048
     Dates: start: 20030101
  9. ASAPHEN [Concomitant]
     Indication: PROPHYLAXIS
     Route: 048
     Dates: start: 20030101
  10. COVERSYL [Concomitant]
     Indication: HYPERTENSION
     Route: 048
     Dates: start: 20030101

REACTIONS (3)
  - STRESS URINARY INCONTINENCE [None]
  - URINARY TRACT OBSTRUCTION [None]
  - NOCTURIA [None]
